FAERS Safety Report 14820132 (Version 2)
Quarter: 2018Q2

REPORT INFORMATION
  Report Type: Spontaneous
  Country: US (occurrence: US)
  Receive Date: 20180427
  Receipt Date: 20180627
  Transmission Date: 20180711
  Serious: No
  Sender: FDA-Public Use
  Company Number: US-ASTRAZENECA-2018SE41076

PATIENT
  Sex: Female
  Weight: 84.4 kg

DRUGS (1)
  1. TUDORZA PRESSAIR [Suspect]
     Active Substance: ACLIDINIUM BROMIDE
     Indication: BRONCHITIS
     Route: 055

REACTIONS (7)
  - Drug ineffective [Unknown]
  - Throat irritation [Unknown]
  - Intentional product misuse [Unknown]
  - Wheezing [Unknown]
  - Product storage error [Unknown]
  - Device malfunction [Unknown]
  - Underdose [Unknown]
